FAERS Safety Report 22312032 (Version 1)
Quarter: 2023Q2

REPORT INFORMATION
  Report Type: Spontaneous
  Country: FR (occurrence: FR)
  Receive Date: 20230512
  Receipt Date: 20230512
  Transmission Date: 20230721
  Serious: Yes (Hospitalization, Other)
  Sender: FDA-Public Use
  Company Number: FR-STADA-275394

PATIENT
  Age: 90 Year
  Sex: Male

DRUGS (10)
  1. LENALIDOMIDE [Suspect]
     Active Substance: LENALIDOMIDE
     Indication: Plasma cell myeloma
     Dosage: LENALIDOMIDE AND DEXAMETHASONE (RD) REGIMEN
     Route: 065
  2. PREDNISOLONE [Suspect]
     Active Substance: PREDNISOLONE
     Indication: Plasma cell myeloma
     Dosage: MELPHALAN, PREDNISOLONE AND BORTEZOMIB (MPV) REGIMEN
     Route: 065
  3. CYCLOPHOSPHAMIDE [Suspect]
     Active Substance: CYCLOPHOSPHAMIDE
     Indication: Plasma cell myeloma
     Dosage: POMALIDOMIDE, CYCLOPHOSPHAMIDE AND DEXAMETHASONE (PCD) REGIMEN
     Route: 065
  4. DEXAMETHASONE [Suspect]
     Active Substance: DEXAMETHASONE
     Indication: Plasma cell myeloma
     Dosage: LENALIDOMIDE AND DEXAMETHASONE (RD) REGIMEN
     Route: 065
  5. DEXAMETHASONE [Suspect]
     Active Substance: DEXAMETHASONE
     Dosage: POMALIDOMIDE, CYCLOPHOSPHAMIDE AND DEXAMETHASONE (PCD) REGIMEN
     Route: 065
  6. POMALIDOMIDE [Suspect]
     Active Substance: POMALIDOMIDE
     Indication: Plasma cell myeloma
     Dosage: POMALIDOMIDE, CYCLOPHOSPHAMIDE AND DEXAMETHASONE (PCD) REGIMEN
     Route: 065
  7. DARATUMUMAB [Concomitant]
     Active Substance: DARATUMUMAB
     Indication: Plasma cell myeloma
     Dosage: A REGIMEN OF DARATUMUMAB, BENDAMUSTINE AND DEXAMETHASONE
     Route: 065
  8. MELPHALAN [Concomitant]
     Active Substance: MELPHALAN
     Indication: Plasma cell myeloma
     Dosage: MELPHALAN, PREDNISOLONE AND BORTEZOMIB (MPV) REGIMEN
     Route: 065
  9. BORTEZOMIB [Concomitant]
     Active Substance: BORTEZOMIB
     Indication: Plasma cell myeloma
     Dosage: MELPHALAN, PREDNISOLONE AND BORTEZOMIB (MPV) REGIMEN
     Route: 065
  10. BENDAMUSTINE [Concomitant]
     Active Substance: BENDAMUSTINE
     Indication: Plasma cell myeloma
     Dosage: A REGIMEN OF DARATUMUMAB, BENDAMUSTINE AND DEXAMETHASONE
     Route: 065

REACTIONS (3)
  - Osteolysis [Unknown]
  - Actinomycosis [Recovered/Resolved]
  - Drug ineffective [Unknown]
